FAERS Safety Report 6358704-X (Version None)
Quarter: 2009Q3

REPORT INFORMATION
  Report Type: 
  Country: None (occurrence: None)
  Receive Date: 20090916
  Receipt Date: 20090630
  Transmission Date: 20100115
  Serious: No
  Sender: FDA-Public Use
  Company Number: US-ABBOTT-09P-163-0583047-00

PATIENT
  Sex: Male
  Weight: 113.5 kg

DRUGS (9)
  1. TRILIPIX [Suspect]
     Indication: BLOOD TRIGLYCERIDES INCREASED
     Dates: start: 20090327, end: 20090401
  2. TRILIPIX [Suspect]
     Indication: BLOOD CHOLESTEROL INCREASED
  3. ZOCOR [Suspect]
     Indication: DRUG USE FOR UNKNOWN INDICATION
     Dates: end: 20090501
  4. FUROSEMIDE [Concomitant]
     Indication: DRUG USE FOR UNKNOWN INDICATION
  5. CARVEDILOL [Concomitant]
     Indication: DRUG USE FOR UNKNOWN INDICATION
  6. ZETIA [Concomitant]
     Indication: DRUG USE FOR UNKNOWN INDICATION
  7. ISOSORB [Concomitant]
     Indication: DRUG USE FOR UNKNOWN INDICATION
  8. COZAAR [Concomitant]
     Indication: DRUG USE FOR UNKNOWN INDICATION
  9. ALPRAZOLAM [Concomitant]
     Indication: DRUG USE FOR UNKNOWN INDICATION

REACTIONS (4)
  - DYSPEPSIA [None]
  - GASTRIC DISORDER [None]
  - JOINT STIFFNESS [None]
  - MYOPATHY [None]
